FAERS Safety Report 9304113 (Version 2)
Quarter: 2013Q2

REPORT INFORMATION
  Report Type: Spontaneous
  Country: DE (occurrence: DE)
  Receive Date: 20130522
  Receipt Date: 20130528
  Transmission Date: 20140414
  Serious: Yes (Congenital Anomaly)
  Sender: FDA-Public Use
  Company Number: DE-PFIZER INC-2013153627

PATIENT
  Sex: 0

DRUGS (2)
  1. VENLAFAXINE HCL [Suspect]
     Indication: BIPOLAR DISORDER
     Dosage: UNK
     Route: 064
  2. QUILONORM RETARD [Suspect]
     Dosage: UNK
     Route: 064

REACTIONS (2)
  - Maternal exposure during pregnancy [Unknown]
  - Atrial septal defect [Unknown]
